FAERS Safety Report 5472733-X (Version None)
Quarter: 2007Q4

REPORT INFORMATION
  Report Type: 
  Country: None (occurrence: None)
  Receive Date: 20071001
  Receipt Date: 20070906
  Transmission Date: 20080405
  Serious: No
  Sender: FDA-Public Use
  Company Number: US-ASTRAZENECA-2006UW19933

PATIENT
  Age: 67 Year
  Sex: Female
  Weight: 58.1 kg

DRUGS (1)
  1. ARIMIDEX [Suspect]
     Indication: BREAST CANCER FEMALE
     Route: 048

REACTIONS (10)
  - ABDOMINAL PAIN UPPER [None]
  - ARTHRALGIA [None]
  - BREAST PAIN [None]
  - DYSPEPSIA [None]
  - GASTROINTESTINAL DISORDER [None]
  - HOT FLUSH [None]
  - JOINT STIFFNESS [None]
  - KIDNEY INFECTION [None]
  - PAIN IN EXTREMITY [None]
  - URINARY TRACT INFECTION [None]
